FAERS Safety Report 9196722 (Version 2)
Quarter: 2013Q2

REPORT INFORMATION
  Report Type: Spontaneous
  Country: DE (occurrence: DE)
  Receive Date: 20130328
  Receipt Date: 20130402
  Transmission Date: 20140414
  Serious: Yes (Other)
  Sender: FDA-Public Use
  Company Number: DE-PFIZER INC-2013098303

PATIENT
  Age: 74 Year
  Sex: Male

DRUGS (10)
  1. RAMIPRIL [Suspect]
     Dosage: 5 MG/DAY
     Route: 048
     Dates: end: 20130129
  2. HYDROCHLOROTHIAZIDE [Suspect]
     Dosage: 25 MG/DAY
     Route: 048
     Dates: end: 20130129
  3. BISOPROLOL FUMARATE [Suspect]
     Dosage: 2.5 MG/DAY
     Route: 048
  4. AMITRIPTYLINE [Suspect]
     Dosage: 25 MG/DAY
     Route: 048
     Dates: start: 20130114, end: 20130121
  5. AMITRIPTYLINE [Suspect]
     Dosage: 50 MG/DAY
     Route: 048
     Dates: start: 20130122, end: 20130128
  6. CYMBALTA [Suspect]
     Dosage: 90MG/DAY
     Route: 048
     Dates: start: 20130103
  7. ACETYLSALICYLIC ACID [Concomitant]
     Dosage: UNK
  8. L-THYROXIN [Concomitant]
     Dosage: UNK
  9. PANTOPRAZOLE [Concomitant]
     Dosage: UNK
  10. ALLOPURINOL [Concomitant]
     Dosage: UNK

REACTIONS (4)
  - Hypotension [Unknown]
  - Circulatory collapse [Recovered/Resolved]
  - Fall [Unknown]
  - Joint dislocation [Unknown]
